FAERS Safety Report 7781769-5 (Version None)
Quarter: 2011Q3

REPORT INFORMATION
  Report Type: 
  Country: None (occurrence: None)
  Receive Date: 20110927
  Receipt Date: 20110921
  Transmission Date: 20111222
  Serious: Yes (Other)
  Sender: FDA-Public Use
  Company Number: CA-GLAXOSMITHKLINE-A0945046A

PATIENT
  Sex: Female

DRUGS (2)
  1. AVIANE-28 [Concomitant]
     Indication: CONTRACEPTION
     Dates: start: 20080728
  2. LAMICTAL [Suspect]
     Indication: EPILEPSY
     Dosage: 50MG TWICE PER DAY
     Route: 065
     Dates: start: 20110728

REACTIONS (2)
  - APHASIA [None]
  - DISTURBANCE IN ATTENTION [None]
